FAERS Safety Report 14576931 (Version 1)
Quarter: 2018Q1

REPORT INFORMATION
  Report Type: Spontaneous
  Country: US (occurrence: US)
  Receive Date: 20180224
  Receipt Date: 20180224
  Transmission Date: 20180509
  Serious: Yes (Hospitalization)
  Sender: FDA-Public Use
  Company Number: None

PATIENT
  Sex: Male
  Weight: 99.3 kg

DRUGS (1)
  1. MEMANTINE HYDROCHLORIDE. [Suspect]
     Active Substance: MEMANTINE HYDROCHLORIDE
     Dates: end: 20170212

REACTIONS (8)
  - Hypercalcaemia [None]
  - Confusional state [None]
  - Acute kidney injury [None]
  - Hypophagia [None]
  - Back pain [None]
  - Asthenia [None]
  - Nephropathy [None]
  - Urinary retention [None]

NARRATIVE: CASE EVENT DATE: 20170212
